FAERS Safety Report 5329783-3 (Version None)
Quarter: 2007Q2

REPORT INFORMATION
  Report Type: 
  Country: None (occurrence: None)
  Receive Date: 20070521
  Receipt Date: 20070514
  Transmission Date: 20071010
  Serious: Yes (Other)
  Sender: FDA-Public Use
  Company Number: US-BAYER-200711513BCC

PATIENT
  Age: 36 Year
  Sex: Male
  Weight: 70 kg

DRUGS (1)
  1. RID SHAMPOO + CONDITIONER [Suspect]
     Indication: LICE INFESTATION
     Route: 061
     Dates: start: 20061201

REACTIONS (5)
  - CAUSTIC INJURY [None]
  - CYST [None]
  - PRURITUS [None]
  - SKIN DISORDER [None]
  - SKIN EXFOLIATION [None]
